FAERS Safety Report 16703464 (Version 1)
Quarter: 2019Q3

REPORT INFORMATION
  Report Type: Report from Study
  Country: AU (occurrence: AU)
  Receive Date: 20190814
  Receipt Date: 20190814
  Transmission Date: 20191004
  Serious: Yes (Hospitalization, Other)
  Sender: FDA-Public Use
  Company Number: AU-JNJFOC-20190200294

PATIENT
  Age: 8 Decade
  Sex: Female

DRUGS (5)
  1. IBRUTINIB [Suspect]
     Active Substance: IBRUTINIB
     Route: 048
  2. IBRUTINIB [Suspect]
     Active Substance: IBRUTINIB
     Route: 048
  3. IBRUTINIB [Suspect]
     Active Substance: IBRUTINIB
     Route: 048
  4. IBRUTINIB [Suspect]
     Active Substance: IBRUTINIB
     Indication: CHRONIC LYMPHOCYTIC LEUKAEMIA
     Route: 048
     Dates: start: 20171101
  5. IBRUTINIB [Suspect]
     Active Substance: IBRUTINIB
     Dosage: ALTERNATE DAYS 280 MG
     Route: 048

REACTIONS (10)
  - Incorrect dose administered [Unknown]
  - Nasopharyngitis [Not Recovered/Not Resolved]
  - Atrial fibrillation [Unknown]
  - Off label use [Unknown]
  - Arthralgia [Recovered/Resolved]
  - Alopecia [Unknown]
  - Influenza [Unknown]
  - Rash pruritic [Not Recovered/Not Resolved]
  - Oropharyngeal pain [Unknown]
  - Skin haemorrhage [Unknown]

NARRATIVE: CASE EVENT DATE: 20171101
